FAERS Safety Report 7875727-X (Version None)
Quarter: 2011Q4

REPORT INFORMATION
  Report Type: 
  Country: None (occurrence: None)
  Receive Date: 20111031
  Receipt Date: 20111022
  Transmission Date: 20120403
  Serious: Yes (Hospitalization, Other)
  Sender: FDA-Public Use
  Company Number: US-BAYER-2011-105306

PATIENT
  Age: 57 Year
  Sex: Male
  Weight: 84 kg

DRUGS (7)
  1. NALTREXONE HYDROCHLORIDE [Concomitant]
     Indication: MULTIPLE SCLEROSIS
     Dosage: 3.5 MG, QD
     Dates: start: 20031111
  2. DALFAMPRIDINE [Concomitant]
     Indication: MOBILITY DECREASED
     Dosage: 3 MG, QD
  3. DALFAMPRIDINE [Concomitant]
     Indication: MULTIPLE SCLEROSIS
  4. SLEEP AID [Concomitant]
     Dosage: 10 MG, QD
     Dates: start: 20001230
  5. BETASERON [Suspect]
     Indication: MULTIPLE SCLEROSIS
     Route: 058
  6. GLATIRAMER ACETATE [Concomitant]
     Indication: MULTIPLE SCLEROSIS
     Dosage: 20 MG, QD
     Dates: start: 20040105
  7. EXTAVIA [Suspect]
     Indication: MULTIPLE SCLEROSIS
     Route: 058

REACTIONS (1)
  - GASTROINTESTINAL HAEMORRHAGE [None]
